FAERS Safety Report 6306844-3 (Version None)
Quarter: 2009Q3

REPORT INFORMATION
  Report Type: 
  Country: None (occurrence: None)
  Receive Date: 20090812
  Receipt Date: 20090731
  Transmission Date: 20100115
  Serious: Yes (Hospitalization)
  Sender: FDA-Public Use
  Company Number: ES-PFIZER INC-2009249840

PATIENT
  Age: 75 Year

DRUGS (9)
  1. ALDACTONE [Suspect]
     Indication: HYPERTENSION
     Dosage: 100 MG, 1X/DAY
     Route: 048
     Dates: start: 20090301, end: 20090428
  2. BOI K [Suspect]
     Dosage: UNK
     Route: 048
     Dates: start: 20090301, end: 20090428
  3. ADIRO [Concomitant]
     Indication: CORONARY ARTERIAL STENT INSERTION
     Dosage: 100 MG, 1X/DAY
     Route: 048
     Dates: start: 20081101
  4. COROPRES [Concomitant]
     Indication: HYPERTENSION
     Dosage: 6 MG, 2X/DAY
     Route: 048
     Dates: start: 20081101
  5. METFORMIN HCL [Concomitant]
     Indication: DIABETES MELLITUS
     Dosage: UNK
     Route: 048
     Dates: start: 20081101
  6. NORVASC [Concomitant]
     Indication: HYPERTENSION
     Dosage: 5 MG, 1X/DAY
     Route: 048
     Dates: start: 20081101
  7. TAMSULOSIN HYDROCHLORIDE [Concomitant]
     Dosage: 0.4 MG, 1X/DAY
     Route: 048
     Dates: start: 20081101
  8. RENITEC [Concomitant]
     Indication: HYPERTENSION
     Dosage: 20 MG, 1X/DAY
     Route: 048
     Dates: start: 20081101
  9. SEGURIL [Concomitant]
     Dosage: 80 MG, 2X/DAY
     Route: 048
     Dates: start: 20081101

REACTIONS (2)
  - ANGINA UNSTABLE [None]
  - HYPERKALAEMIA [None]
